FAERS Safety Report 9470885 (Version 1)
Quarter: 2013Q3

REPORT INFORMATION
  Report Type: Spontaneous
  Country: US (occurrence: US)
  Receive Date: 20130822
  Receipt Date: 20130822
  Transmission Date: 20140515
  Serious: No
  Sender: FDA-Public Use
  Company Number: US-MYLANLABS-2013S1018649

PATIENT
  Sex: Female

DRUGS (1)
  1. ULTIVA [Suspect]
     Indication: ENDOMETRIAL ABLATION

REACTIONS (1)
  - Pain [Recovered/Resolved]
